FAERS Safety Report 11353276 (Version 1)
Quarter: 2015Q3

REPORT INFORMATION
  Report Type: Spontaneous
  Country: US (occurrence: US)
  Receive Date: 20150807
  Receipt Date: 20150807
  Transmission Date: 20151125
  Serious: No
  Sender: FDA-Public Use
  Company Number: US-JNJFOC-20150413059

PATIENT
  Age: 77 Year
  Sex: Female
  Weight: 69.4 kg

DRUGS (2)
  1. MENS ROGAINE EXTRA STRENGTH [Suspect]
     Active Substance: MINOXIDIL
     Indication: ALOPECIA
     Dosage: A CAPFUL; ONCE ON TWO SEPARATE DAYS
     Route: 061
     Dates: start: 20150409, end: 20150411
  2. MENS ROGAINE EXTRA STRENGTH [Suspect]
     Active Substance: MINOXIDIL
     Route: 061

REACTIONS (4)
  - Drug prescribing error [Unknown]
  - Incorrect dose administered [Unknown]
  - Wrong patient received medication [Unknown]
  - Product quality issue [Unknown]
